FAERS Safety Report 4278939-X (Version None)
Quarter: 2004Q1

REPORT INFORMATION
  Report Type: 
  Country: None (occurrence: None)
  Receive Date: 20040126
  Receipt Date: 20020108
  Transmission Date: 20041129
  Serious: Yes (Hospitalization)
  Sender: FDA-Public Use
  Company Number: BE-ROCHE-304575

PATIENT
  Age: 64 Year
  Sex: Female
  Weight: 88 kg

DRUGS (18)
  1. DACLIZUMAB [Suspect]
     Route: 042
     Dates: start: 20011108, end: 20011108
  2. DACLIZUMAB [Suspect]
     Route: 042
     Dates: start: 20011123, end: 20020104
  3. MYCOPHENOLATE MOFETIL [Suspect]
     Route: 048
     Dates: start: 20011108
  4. MYCOPHENOLATE MOFETIL [Suspect]
     Route: 048
     Dates: start: 20020412, end: 20020603
  5. MYCOPHENOLATE MOFETIL [Suspect]
     Route: 048
     Dates: start: 20020604, end: 20020605
  6. NEORAL [Concomitant]
     Dates: start: 20020221, end: 20020406
  7. CORTICOSTEROIDS [Concomitant]
  8. COZAAR [Concomitant]
     Dates: start: 20011227
  9. CORVATARD [Concomitant]
     Dates: start: 20011112
  10. MOXON [Concomitant]
     Dates: start: 20011112
  11. LASIX [Concomitant]
     Dates: start: 20011227
  12. INSULIN [Concomitant]
     Dates: start: 20011113
  13. DELTACORTRIL [Concomitant]
     Dates: start: 20011225
  14. AMLOR [Concomitant]
     Dates: start: 20011111
  15. TEMESTA [Concomitant]
     Dates: start: 20020514
  16. ASPIRIN [Concomitant]
     Dates: start: 20011112
  17. ZANTAC [Concomitant]
     Dates: start: 20020111
  18. CALCIUM [Concomitant]
     Dates: start: 20011121

REACTIONS (10)
  - ANGINA PECTORIS [None]
  - FLUID OVERLOAD [None]
  - HYDRONEPHROSIS [None]
  - KIDNEY TRANSPLANT REJECTION [None]
  - LYMPHOMA [None]
  - STENOSIS OF VESICOURETHRAL ANASTOMOSIS [None]
  - URINARY TRACT INFECTION [None]
  - WEIGHT DECREASED [None]
  - WOUND DEHISCENCE [None]
  - WOUND EVISCERATION [None]
